FAERS Safety Report 19653074 (Version 4)
Quarter: 2022Q4

REPORT INFORMATION
  Report Type: Report from Study
  Country: JP (occurrence: JP)
  Receive Date: 20210803
  Receipt Date: 20221128
  Transmission Date: 20230113
  Serious: Yes (Death, Other)
  Sender: FDA-Public Use
  Company Number: JP-ONO-2021JP017670

PATIENT
  Age: 67 Year
  Sex: Female
  Weight: 60 kg

DRUGS (5)
  1. BRAFTOVI [Suspect]
     Active Substance: ENCORAFENIB
     Indication: Cholangiocarcinoma
     Dosage: 450 MG, EVERYDAY (9 TABLETS, ONCE)
     Route: 048
     Dates: start: 20210629, end: 20210702
  2. MEKTOVI [Suspect]
     Active Substance: BINIMETINIB
     Indication: Cholangiocarcinoma
     Dosage: 45 MG, Q12H (6 TABLETS IN 2 DIVIDED DOSES PER DAY)
     Route: 048
     Dates: start: 20210629, end: 20210702
  3. OXYCONTIN [Suspect]
     Active Substance: OXYCODONE HYDROCHLORIDE
     Dosage: 10 MG, EVERYDAY
     Route: 065
     Dates: start: 20210628
  4. FENTANYL [Concomitant]
     Active Substance: FENTANYL
     Indication: Pain
     Dosage: 0.5 MG, EVERYDAY
     Route: 062
     Dates: start: 20210705, end: 20210713
  5. OXYCODONE HYDROCHLORIDE [Concomitant]
     Active Substance: OXYCODONE HYDROCHLORIDE
     Indication: Pain
     Dosage: 2.5 MG, AS-NEEDED USE (WHEN PAIN OCCURS, 2 HOURS APART)
     Route: 048
     Dates: start: 20210703, end: 20210711

REACTIONS (6)
  - Neoplasm progression [Fatal]
  - Hepatic encephalopathy [Recovered/Resolved]
  - Dehydration [Unknown]
  - Gastrooesophageal reflux disease [Unknown]
  - Decreased appetite [Unknown]
  - Off label use [Unknown]

NARRATIVE: CASE EVENT DATE: 20210629
